FAERS Safety Report 14637203 (Version 2)
Quarter: 2018Q2

REPORT INFORMATION
  Report Type: Spontaneous
  Country: US (occurrence: US)
  Receive Date: 20180314
  Receipt Date: 20180418
  Transmission Date: 20180711
  Serious: Yes (Death)
  Sender: FDA-Public Use
  Company Number: US-ENDO PHARMACEUTICALS INC-2018-022742

PATIENT
  Sex: Female

DRUGS (1)
  1. SUPPRELIN LA [Suspect]
     Active Substance: HISTRELIN ACETATE
     Indication: PRODUCT USED FOR UNKNOWN INDICATION
     Dosage: UNK MG, UNKNOWN
     Route: 065

REACTIONS (2)
  - Device breakage [Unknown]
  - Death [Fatal]
